FAERS Safety Report 6473667 (Version 15)
Quarter: 2013Q1

REPORT INFORMATION
  Report Type: Spontaneous
  Country: US (occurrence: US)
  Receive Date: 20071121
  Receipt Date: 20130103
  Transmission Date: 20140127
  Serious: Yes (Hospitalization, Congenital Anomaly, Other)
  Sender: FDA-Public Use
  Company Number: US-PFIZER INC-2007095367

PATIENT
  Sex: Female
  Weight: 3.4 kg

DRUGS (17)
  1. ZOLOFT [Suspect]
     Indication: DEPRESSION
     Dosage: 100 MG AND 50MG
     Route: 064
     Dates: start: 2001, end: 2007
  2. PRILOSEC [Concomitant]
     Indication: GASTROOESOPHAGEAL REFLUX DISEASE
     Dosage: UNK
     Route: 064
  3. ZANTAC [Concomitant]
     Indication: GASTROOESOPHAGEAL REFLUX DISEASE
     Dosage: UNK
     Route: 064
  4. ELIDEL [Concomitant]
     Indication: ECZEMA
     Dosage: UNK
     Route: 064
  5. HYDROCORTISONE [Concomitant]
     Dosage: UNK
     Route: 064
  6. KEFLEX [Concomitant]
     Dosage: UNK
     Route: 064
  7. PREVACID [Concomitant]
     Indication: GASTROOESOPHAGEAL REFLUX DISEASE
     Dosage: 15 MG, UNK
     Route: 064
  8. SUDAFED [Concomitant]
     Dosage: UNK
     Route: 064
  9. TYLENOL [Concomitant]
     Dosage: UNK
     Route: 064
  10. ZITHROMAX [Concomitant]
     Indication: OTITIS MEDIA
     Dosage: UNK
     Route: 064
  11. AURALGAN [Concomitant]
     Indication: OTITIS MEDIA
     Dosage: UNK
     Route: 064
  12. PRENATAL VITAMINS [Concomitant]
     Dosage: UNK
     Route: 064
  13. TUMS [Concomitant]
     Dosage: UNK
     Route: 064
  14. IBUPROFEN [Concomitant]
     Dosage: UNK
     Route: 064
  15. HYDROXYZINE [Concomitant]
     Dosage: UNK
     Route: 064
  16. AMOXICILLIN [Concomitant]
     Dosage: UNK
     Route: 064
  17. METHYLPREDNISOLONE [Concomitant]
     Dosage: UNK
     Route: 064

REACTIONS (9)
  - Maternal exposure timing unspecified [Unknown]
  - Ebstein^s anomaly [Unknown]
  - Pulmonary artery stenosis congenital [Unknown]
  - Neonatal respiratory distress syndrome [Unknown]
  - Tricuspid valve incompetence [Unknown]
  - Patent ductus arteriosus [Unknown]
  - Congenital anomaly [Unknown]
  - Atrial septal defect [Unknown]
  - Right ventricular hypertrophy [Unknown]
